FAERS Safety Report 22044579 (Version 1)
Quarter: 2023Q1

REPORT INFORMATION
  Report Type: Report from Study
  Country: US (occurrence: US)
  Receive Date: 20230228
  Receipt Date: 20230228
  Transmission Date: 20230417
  Serious: Yes (Other)
  Sender: FDA-Public Use
  Company Number: US-002147023-NVSC2023US040046

PATIENT
  Age: 20 Year
  Sex: Female

DRUGS (3)
  1. VIJOICE [Suspect]
     Active Substance: ALPELISIB
     Indication: PIK3CA related overgrowth spectrum
     Dosage: 250 MG, QD
     Route: 048
     Dates: start: 20200101
  2. VIJOICE [Suspect]
     Active Substance: ALPELISIB
     Dosage: 250 MG, QD
     Route: 048
     Dates: start: 202003
  3. VIJOICE [Suspect]
     Active Substance: ALPELISIB
     Dosage: 250 MG, QD
     Route: 048
     Dates: start: 20220920, end: 20230216

REACTIONS (9)
  - Chest crushing [Unknown]
  - Inflammation [Not Recovered/Not Resolved]
  - Tenderness [Not Recovered/Not Resolved]
  - Spinal disorder [Unknown]
  - Lymphadenopathy [Not Recovered/Not Resolved]
  - Pain [Not Recovered/Not Resolved]
  - Headache [Unknown]
  - Swelling [Unknown]
  - Product availability issue [Unknown]

NARRATIVE: CASE EVENT DATE: 20230216
